FAERS Safety Report 4721937-X (Version None)
Quarter: 2005Q3

REPORT INFORMATION
  Report Type: 
  Country: None (occurrence: None)
  Receive Date: 20050720
  Receipt Date: 20050707
  Transmission Date: 20060218
  Serious: Yes (Hospitalization, Other)
  Sender: FDA-Public Use
  Company Number: HQWYE186413JUL05

PATIENT
  Age: 50 Year
  Sex: Male

DRUGS (3)
  1. MINOCIN [Suspect]
     Indication: BACTERIAL INFECTION
     Dosage: INTRAVENOUS DRIP
     Route: 041
     Dates: start: 20050628, end: 20050628
  2. LEVOFLOXACIN [Concomitant]
  3. CEFDINIR [Concomitant]

REACTIONS (4)
  - ALANINE AMINOTRANSFERASE INCREASED [None]
  - ASPARTATE AMINOTRANSFERASE INCREASED [None]
  - BLOOD ALKALINE PHOSPHATASE INCREASED [None]
  - LIVER DISORDER [None]
